FAERS Safety Report 5799056-3 (Version None)
Quarter: 2008Q3

REPORT INFORMATION
  Report Type: 
  Country: None (occurrence: None)
  Receive Date: 20080701
  Receipt Date: 20080618
  Transmission Date: 20090109
  Serious: No
  Sender: FDA-Public Use
  Company Number: TPA2008A00927

PATIENT
  Age: 52 Year
  Sex: Male
  Weight: 73.0291 kg

DRUGS (13)
  1. ACTOS [Suspect]
     Indication: TYPE 2 DIABETES MELLITUS
     Dosage: 15 MG, 1 IN 1 D, PER ORAL
     Route: 048
     Dates: start: 20060101
  2. AMLODIPINE [Suspect]
     Indication: HYPERTENSION
     Dosage: 10 MG, 1 IN 1 D, PER ORAL
     Route: 048
     Dates: start: 20080301
  3. LISINO/HCTZ (HYDROCHLOROTHIAZIDE, LISINOPRIL) [Concomitant]
  4. PREVACID [Concomitant]
  5. ZOCOR [Concomitant]
  6. METFORMIN HCL [Concomitant]
  7. CLARITIN [Concomitant]
  8. ASCORBIC ACID [Concomitant]
  9. DICHROMIUM (CHROMIUM AND BIOTIN) (MINERAL SUPPLEMENTS) [Concomitant]
  10. OMEGA 3 FISH OIL (FISH OIL) [Concomitant]
  11. FOLIC ACID [Concomitant]
  12. VITAMIN B1 TAB [Concomitant]
  13. COQ-10(ALL OTHER THERAPEUTIC PRODUCTS) [Concomitant]

REACTIONS (5)
  - BLOOD PRESSURE INCREASED [None]
  - DRUG DISPENSING ERROR [None]
  - DRUG INEFFECTIVE [None]
  - EXPIRED DRUG ADMINISTERED [None]
  - OEDEMA PERIPHERAL [None]
